FAERS Safety Report 15599779 (Version 6)
Quarter: 2019Q2

REPORT INFORMATION
  Report Type: Report from Study
  Country: US (occurrence: US)
  Receive Date: 20181108
  Receipt Date: 20190424
  Transmission Date: 20190711
  Serious: Yes (Congenital Anomaly, Other)
  Sender: FDA-Public Use
  Company Number: US-GILEAD-2018-0371896

PATIENT
  Age: 0 Day
  Sex: Female
  Weight: 3.91 kg

DRUGS (5)
  1. TIVICAY [Suspect]
     Active Substance: DOLUTEGRAVIR SODIUM
     Indication: HIV INFECTION
     Dosage: 50 MG; FIRST TRIMESTER
     Route: 064
  2. RETROVIR [Suspect]
     Active Substance: ZIDOVUDINE
     Indication: HIV INFECTION
     Dosage: 2 MG/KG/H
     Route: 064
     Dates: start: 20180119, end: 20180119
  3. EMTRICITABINE/TENOFOVIR ALAFENAMIDE [Suspect]
     Active Substance: EMTRICITABINE\TENOFOVIR
     Indication: HIV INFECTION
     Dosage: 225 MG, QD; PRIOR TO CONCEPTION
     Route: 064
     Dates: start: 20170120
  4. RETROVIR [Suspect]
     Active Substance: ZIDOVUDINE
     Dosage: 1 MG/KG/H
     Route: 064
     Dates: start: 20180119, end: 20180119
  5. FOLATE [Concomitant]
     Active Substance: FOLATE SODIUM
     Route: 064

REACTIONS (11)
  - Pulmonary valve stenosis [Unknown]
  - Noonan syndrome [Unknown]
  - Thrombocytopenia [Unknown]
  - Dysmorphism [Not Recovered/Not Resolved]
  - Neck deformity [Unknown]
  - Cardiac septal hypertrophy [Unknown]
  - Patent ductus arteriosus [Unknown]
  - Atrial septal defect [Unknown]
  - Tooth development disorder [Unknown]
  - Gastrooesophageal reflux disease [Unknown]
  - Foetal exposure during pregnancy [Unknown]

NARRATIVE: CASE EVENT DATE: 20180119
